FAERS Safety Report 4682813-4 (Version None)
Quarter: 2005Q2

REPORT INFORMATION
  Report Type: 
  Country: None (occurrence: None)
  Receive Date: 20050606
  Receipt Date: 20040105
  Transmission Date: 20051028
  Serious: Yes (Death, Congenital Anomaly)
  Sender: FDA-Public Use
  Company Number: 2004AP00033

PATIENT
  Sex: Female

DRUGS (1)
  1. CANDESARTAN [Suspect]
     Indication: HYPERTENSION

REACTIONS (8)
  - ANURIA [None]
  - CAESAREAN SECTION [None]
  - COAGULATION DISORDER NEONATAL [None]
  - DRUG EXPOSURE DURING PREGNANCY [None]
  - FOETAL MALFORMATION [None]
  - NEONATAL DISORDER [None]
  - NEONATAL RESPIRATORY ACIDOSIS [None]
  - OLIGOHYDRAMNIOS [None]
